FAERS Safety Report 8243845-2 (Version None)
Quarter: 2012Q1

REPORT INFORMATION
  Report Type: 
  Country: None (occurrence: None)
  Receive Date: 20120329
  Receipt Date: 20120322
  Transmission Date: 20120608
  Serious: Yes (Death)
  Sender: FDA-Public Use
  Company Number: JP-UCBSA-053926

PATIENT
  Age: 72 Year
  Sex: Male
  Weight: 60 kg

DRUGS (5)
  1. FERROUS CITRATE [Concomitant]
     Dosage: DAILY DOSE 2.4 GRAM
     Route: 048
     Dates: start: 20111114
  2. THEOLONG [Concomitant]
     Dosage: DAILY DOSE 400 MG
     Route: 048
     Dates: start: 20111115
  3. DIGOXIN [Concomitant]
     Dosage: DAILY DOSE 0.25 MG
     Route: 048
     Dates: start: 20111109
  4. FLORINEF [Concomitant]
     Dosage: DAILY DOSE 0.1 MG
     Route: 048
     Dates: start: 20111114
  5. KEPPRA [Suspect]
     Indication: SIMPLE PARTIAL SEIZURES
     Route: 048
     Dates: start: 20111107

REACTIONS (1)
  - DEATH [None]
